FAERS Safety Report 12759400 (Version 2)
Quarter: 2016Q4

REPORT INFORMATION
  Report Type: Spontaneous
  Country: US (occurrence: US)
  Receive Date: 20160919
  Receipt Date: 20161229
  Transmission Date: 20170207
  Serious: No
  Sender: FDA-Public Use
  Company Number: US-BAYER-2016-157049

PATIENT
  Age: 64 Year
  Sex: Male
  Weight: 81.63 kg

DRUGS (3)
  1. ASPIRINE [Concomitant]
     Active Substance: ASPIRIN
  2. ASPIRIN. [Concomitant]
     Active Substance: ASPIRIN
  3. ALEVE [Suspect]
     Active Substance: NAPROXEN SODIUM
     Indication: BACK PAIN
     Dosage: UNK UNK, PRN

REACTIONS (4)
  - Device stimulation issue [Unknown]
  - Medical device site pain [Unknown]
  - Device use issue [Unknown]
  - Device ineffective [Unknown]

NARRATIVE: CASE EVENT DATE: 20160728
